FAERS Safety Report 9050726 (Version 1)
Quarter: 2013Q1

REPORT INFORMATION
  Report Type: Report from Study
  Country: US (occurrence: US)
  Receive Date: 20130205
  Receipt Date: 20130205
  Transmission Date: 20140127
  Serious: Yes (Other)
  Sender: FDA-Public Use
  Company Number: US-JNJFOC-20130115771

PATIENT
  Sex: Female

DRUGS (4)
  1. REMICADE [Suspect]
     Indication: RHEUMATOID ARTHRITIS
     Route: 042
     Dates: start: 2012
  2. SYNTHROID [Concomitant]
     Route: 065
  3. SYNTHROID [Concomitant]
     Route: 065
  4. UNKNOWN MEDICATION [Concomitant]
     Route: 065

REACTIONS (1)
  - Tooth disorder [Unknown]
